FAERS Safety Report 15578618 (Version 1)
Quarter: 2018Q4

REPORT INFORMATION
  Report Type: Spontaneous
  Country: US (occurrence: US)
  Receive Date: 20181102
  Receipt Date: 20181102
  Transmission Date: 20190205
  Serious: Yes (Other)
  Sender: FDA-Public Use
  Company Number: US-MYLANLABS-2018M1079830

PATIENT
  Age: 4 Decade
  Sex: Male

DRUGS (4)
  1. ROSUVASTATIN. [Suspect]
     Active Substance: ROSUVASTATIN
     Route: 048
     Dates: start: 201512, end: 201602
  2. ROSUVASTATIN. [Suspect]
     Active Substance: ROSUVASTATIN
     Indication: LIPIDS INCREASED
     Route: 048
     Dates: start: 201409
  3. COENZYME Q10 [Concomitant]
     Active Substance: UBIDECARENONE
     Indication: LIPIDS INCREASED
     Route: 048
  4. PRAVASTATIN. [Suspect]
     Active Substance: PRAVASTATIN
     Indication: LIPIDS INCREASED
     Route: 048
     Dates: start: 201608

REACTIONS (2)
  - Tendon rupture [Recovered/Resolved]
  - Tendon disorder [Not Recovered/Not Resolved]

NARRATIVE: CASE EVENT DATE: 201503
